FAERS Safety Report 7115717-8 (Version None)
Quarter: 2010Q4

REPORT INFORMATION
  Report Type: 
  Country: None (occurrence: None)
  Receive Date: 20101122
  Receipt Date: 20101111
  Transmission Date: 20110411
  Serious: Yes (Other)
  Sender: FDA-Public Use
  Company Number: US-JNJFOC-20101106070

PATIENT
  Age: 48 Year
  Sex: Female

DRUGS (1)
  1. DURAGESIC-100 [Suspect]
     Indication: ARTHRALGIA
     Route: 062

REACTIONS (6)
  - COGNITIVE DISORDER [None]
  - HEAD DISCOMFORT [None]
  - HOT FLUSH [None]
  - IMPAIRED DRIVING ABILITY [None]
  - THINKING ABNORMAL [None]
  - WITHDRAWAL SYNDROME [None]
